FAERS Safety Report 5110751-1 (Version None)
Quarter: 2006Q3

REPORT INFORMATION
  Report Type: 
  Country: None (occurrence: None)
  Receive Date: 20060919
  Receipt Date: 20060831
  Transmission Date: 20061208
  Serious: Yes (Hospitalization, Other)
  Sender: FDA-Public Use
  Company Number: 2006SP001109

PATIENT
  Age: 45 Year
  Sex: Female
  Weight: 56.6996 kg

DRUGS (9)
  1. PEG-INTRON [Suspect]
     Indication: HEPATITIS C
     Dates: start: 20050819, end: 20060126
  2. REBETOL [Suspect]
     Indication: HEPATITIS C
     Dosage: PO
     Route: 048
     Dates: start: 20050819, end: 20060126
  3. FOLIC ACID (CON.) [Concomitant]
  4. LEXAPRO (CON.) [Concomitant]
  5. METHOTREXATE (CON.) [Concomitant]
  6. NEURONTIN (CON.) [Concomitant]
  7. PHENERGAN (CON.) [Concomitant]
  8. PREMARIN (CON.) [Concomitant]
  9. TRAZODONE (CON.) [Concomitant]

REACTIONS (14)
  - ALOPECIA [None]
  - AMNESIA [None]
  - ANGER [None]
  - ANXIETY [None]
  - COMA [None]
  - DEPRESSED LEVEL OF CONSCIOUSNESS [None]
  - DEPRESSION [None]
  - EATING DISORDER [None]
  - LETHARGY [None]
  - PSYCHOTIC DISORDER [None]
  - TOXIC SHOCK SYNDROME [None]
  - TREATMENT NONCOMPLIANCE [None]
  - VOMITING [None]
  - WEIGHT DECREASED [None]
